FAERS Safety Report 13446639 (Version 1)
Quarter: 2017Q2

REPORT INFORMATION
  Report Type: Spontaneous
  Country: US (occurrence: US)
  Receive Date: 20170417
  Receipt Date: 20170417
  Transmission Date: 20170830
  Serious: No
  Sender: FDA-Public Use
  Company Number: US-BAYER-2017-069954

PATIENT
  Age: 85 Year
  Sex: Female
  Weight: 62.99 kg

DRUGS (1)
  1. MIRALAX [Suspect]
     Active Substance: POLYETHYLENE GLYCOL 3350
     Indication: GASTROINTESTINAL DISORDER
     Dosage: UNK 17G WITH 8OZ WATER DOSE
     Route: 048

REACTIONS (4)
  - Flatulence [Unknown]
  - Product use issue [None]
  - Drug ineffective [Unknown]
  - Product use issue [Unknown]
